FAERS Safety Report 6945787-9 (Version None)
Quarter: 2010Q3

REPORT INFORMATION
  Report Type: 
  Country: None (occurrence: None)
  Receive Date: 20100827
  Receipt Date: 20100824
  Transmission Date: 20110219
  Serious: Yes (Other)
  Sender: FDA-Public Use
  Company Number: B0671174A

PATIENT
  Age: 43 Year
  Sex: Female
  Weight: 110 kg

DRUGS (7)
  1. AMPICILLIN SODIUM/SULBACTAM SODIUM [Suspect]
     Route: 042
     Dates: start: 20100816, end: 20100816
  2. MIDAZOLAM HCL [Concomitant]
     Route: 042
     Dates: start: 20100816, end: 20100816
  3. FENTANYL CITRATE [Concomitant]
     Route: 042
     Dates: start: 20100816, end: 20100816
  4. PROPOFOL [Concomitant]
     Route: 042
     Dates: start: 20100816, end: 20100816
  5. TRAMADOL HCL [Concomitant]
     Route: 042
     Dates: start: 20100816, end: 20100816
  6. ATRACURIUM [Concomitant]
     Route: 042
     Dates: start: 20100816, end: 20100816
  7. REMIFENTANIL [Concomitant]
     Route: 042
     Dates: start: 20100816, end: 20100816

REACTIONS (3)
  - BRONCHOSPASM [None]
  - HYPOTENSION [None]
  - TACHYCARDIA [None]
